FAERS Safety Report 18356343 (Version 4)
Quarter: 2020Q4

REPORT INFORMATION
  Report Type: Spontaneous
  Country: JP (occurrence: JP)
  Receive Date: 20201007
  Receipt Date: 20201204
  Transmission Date: 20210114
  Serious: Yes (Life-Threatening, Hospitalization)
  Sender: FDA-Public Use
  Company Number: JP-JNJFOC-20200950654

PATIENT
  Age: 72 Year
  Sex: Male
  Weight: 52.3 kg

DRUGS (5)
  1. TREMFYA [Suspect]
     Active Substance: GUSELKUMAB
     Indication: PALMOPLANTAR PUSTULOSIS
     Dosage: 2ND DOSE: 30-JUN-2020. 3RD DOSE: 25-AUG-2020
     Route: 058
     Dates: start: 20200602, end: 20200922
  2. TREMFYA [Suspect]
     Active Substance: GUSELKUMAB
     Indication: PUSTULOTIC ARTHRO-OSTEITIS
  3. TREMFYA [Suspect]
     Active Substance: GUSELKUMAB
  4. OTEZLA [Concomitant]
     Active Substance: APREMILAST
     Indication: PUSTULOTIC ARTHRO-OSTEITIS
  5. OTEZLA [Concomitant]
     Active Substance: APREMILAST
     Indication: PALMOPLANTAR PUSTULOSIS
     Dates: start: 202001, end: 20200924

REACTIONS (1)
  - Angioimmunoblastic T-cell lymphoma [Not Recovered/Not Resolved]

NARRATIVE: CASE EVENT DATE: 20200825
